FAERS Safety Report 8529049-4 (Version None)
Quarter: 2012Q3

REPORT INFORMATION
  Report Type: 
  Country: None (occurrence: None)
  Receive Date: 20120716
  Receipt Date: 20120716
  Transmission Date: 20120928
  Serious: Yes (Hospitalization)
  Sender: FDA-Public Use
  Company Number: None

PATIENT
  Sex: Male
  Weight: 104 kg

DRUGS (3)
  1. CETUXIMAB (ERBITUX) 537 MG [Suspect]
     Dosage: 537 MG
  2. PACLITAXEL [Suspect]
     Dosage: 462 MG
  3. CARBOPLATIN [Suspect]
     Dosage: 900 MG

REACTIONS (5)
  - LETHARGY [None]
  - DEHYDRATION [None]
  - DECREASED APPETITE [None]
  - BLOOD SODIUM DECREASED [None]
  - PYREXIA [None]
